FAERS Safety Report 6278191-X (Version None)
Quarter: 2009Q3

REPORT INFORMATION
  Report Type: 
  Country: None (occurrence: None)
  Receive Date: 20090722
  Receipt Date: 20090710
  Transmission Date: 20100115
  Serious: Yes (Death, Hospitalization)
  Sender: FDA-Public Use
  Company Number: CH-PFIZER INC-2009238593

PATIENT
  Age: 52 Year

DRUGS (12)
  1. SOLU-MEDROL [Suspect]
     Dosage: 125 MG, 1X/DAY
     Route: 041
  2. CELLCEPT [Suspect]
     Indication: STEM CELL TRANSPLANT
     Dosage: 1 G, 2X/DAY
     Route: 041
     Dates: start: 20080101
  3. PROGRAF [Suspect]
     Indication: STEM CELL TRANSPLANT
     Dosage: 0.5 MG, 2X/DAY
     Route: 048
     Dates: start: 20080101
  4. FOSCAVIR [Concomitant]
     Dosage: 6.5 G, 2X/DAY
     Route: 041
  5. TAZOBAC [Concomitant]
     Dosage: 4.5 G, 3X/DAY
     Route: 041
  6. ZEFFIX [Concomitant]
     Dosage: 100 MG, 1X/DAY
     Route: 048
  7. WELLVONE [Concomitant]
     Dosage: 1500 MG, 1X/DAY
     Route: 048
  8. URSO FALK [Concomitant]
     Dosage: 250 MG, 3X/DAY
     Route: 048
  9. TRAMADOL HCL [Concomitant]
     Dosage: 100 MG, 2X/DAY
     Route: 048
  10. POSACONAZOLE [Concomitant]
     Dosage: 400 MG, 2X/DAY
     Route: 048
  11. RANITIDINE [Concomitant]
     Dosage: 300 MG, 1X/DAY
     Route: 048
  12. CALCIMAGON-D3 [Concomitant]
     Dosage: 1 DF, 2X/DAY
     Route: 048

REACTIONS (1)
  - SEPSIS [None]
